FAERS Safety Report 7760423-X (Version None)
Quarter: 2011Q3

REPORT INFORMATION
  Report Type: 
  Country: None (occurrence: None)
  Receive Date: 20110919
  Receipt Date: 20110913
  Transmission Date: 20111222
  Serious: Yes (Other)
  Sender: FDA-Public Use
  Company Number: FR-VALEANT-2011VX002721

PATIENT
  Age: 35 Year
  Sex: Male

DRUGS (1)
  1. FLUOROURACIL [Suspect]
     Route: 061
     Dates: start: 20110701, end: 20110909

REACTIONS (1)
  - CYTOLYTIC HEPATITIS [None]
